FAERS Safety Report 24179200 (Version 1)
Quarter: 2024Q3

REPORT INFORMATION
  Report Type: Spontaneous
  Country: US (occurrence: US)
  Receive Date: 20240806
  Receipt Date: 20240806
  Transmission Date: 20241017
  Serious: Yes (Other)
  Sender: UPSHER SMITH LABORATORIES
  Company Number: US-UPSHER-SMITH LABORATORIES, LLC-20240700057

PATIENT

DRUGS (1)
  1. VIGADRONE [Suspect]
     Active Substance: VIGABATRIN
     Indication: Infantile spasms
     Dosage: 525 MG,(10.5 ML) BID
     Route: 048
     Dates: start: 20240419, end: 2024

REACTIONS (1)
  - Mitochondrial cytopathy [Not Recovered/Not Resolved]

NARRATIVE: CASE EVENT DATE: 20240101
